FAERS Safety Report 8291556-X (Version None)
Quarter: 2012Q2

REPORT INFORMATION
  Report Type: 
  Country: None (occurrence: None)
  Receive Date: 20120417
  Receipt Date: 20120413
  Transmission Date: 20120825
  Serious: Yes (Disabling, Other)
  Sender: FDA-Public Use
  Company Number: PHHY2012CH028195

PATIENT
  Age: 33 Year
  Sex: Female

DRUGS (2)
  1. GILENYA [Suspect]
     Indication: RELAPSING-REMITTING MULTIPLE SCLEROSIS
     Route: 048
     Dates: start: 20110905
  2. IBRUPROFEN [Concomitant]

REACTIONS (4)
  - HEADACHE [None]
  - MYALGIA [None]
  - NAUSEA [None]
  - ABDOMINAL PAIN UPPER [None]
